FAERS Safety Report 11294400 (Version 1)
Quarter: 2015Q3

REPORT INFORMATION
  Report Type: Spontaneous
  Country: US (occurrence: US)
  Receive Date: 20150722
  Receipt Date: 20150722
  Transmission Date: 20151125
  Serious: Yes (Other)
  Sender: FDA-Public Use
  Company Number: US-ELI_LILLY_AND_COMPANY-US200807000051

PATIENT
  Sex: Female

DRUGS (5)
  1. CALCIUM [Concomitant]
     Active Substance: CALCIUM
     Dosage: 2 D/F, UNK
  2. MAGNESIUM [Concomitant]
     Active Substance: MAGNESIUM
  3. EVISTA [Suspect]
     Active Substance: RALOXIFENE HYDROCHLORIDE
     Indication: OSTEOPOROSIS
     Dosage: 60 MG, DAILY (1/D)
     Dates: start: 200706, end: 20080623
  4. VITAMIN D [Concomitant]
     Active Substance: CHOLECALCIFEROL
  5. EVISTA [Suspect]
     Active Substance: RALOXIFENE HYDROCHLORIDE
     Dosage: UNK, UNK

REACTIONS (2)
  - Muscle spasms [Not Recovered/Not Resolved]
  - Arthritis [Unknown]
